FAERS Safety Report 7235695-0 (Version None)
Quarter: 2011Q1

REPORT INFORMATION
  Report Type: 
  Country: None (occurrence: None)
  Receive Date: 20110120
  Receipt Date: 20110117
  Transmission Date: 20110831
  Serious: Yes (Life-Threatening, Hospitalization)
  Sender: FDA-Public Use
  Company Number: FR-PFIZER INC-2010123479

PATIENT
  Age: 78 Year
  Sex: Female
  Weight: 80 kg

DRUGS (5)
  1. SUTENT [Suspect]
     Indication: RENAL CANCER METASTATIC
     Dosage: 50 MG PER DAY FOR 28 DAYS, WITHDRAWAL  OF 15 DAYS
     Route: 048
     Dates: start: 20091001, end: 20100909
  2. NEXIUM [Concomitant]
     Indication: GASTROOESOPHAGEAL REFLUX DISEASE
     Dosage: UNKNOWN DOSE, 1X/DAY
     Route: 048
  3. FUROSEMIDE [Concomitant]
     Indication: HYPERTENSION
     Dosage: UNKNOWN DOSE, 1X/DAY
     Route: 048
  4. CITALOPRAM [Concomitant]
     Indication: HYPERTENSION
     Dosage: UNKNOWN DOSE, 1X/DAY
     Route: 048
  5. PRETERAX [Concomitant]
     Indication: HYPERTENSION
     Dosage: UNKNOWN DOSE, 1X/DAY
     Route: 048

REACTIONS (4)
  - CONFUSIONAL STATE [None]
  - HYPONATRAEMIA [None]
  - HYPOTHYROIDISM [None]
  - OEDEMA [None]
